FAERS Safety Report 18059905 (Version 1)
Quarter: 2020Q3

REPORT INFORMATION
  Report Type: Spontaneous
  Country: US (occurrence: US)
  Receive Date: 20200723
  Receipt Date: 20200723
  Transmission Date: 20201103
  Serious: No
  Sender: FDA-Public Use
  Company Number: None

PATIENT
  Age: 65 Year
  Sex: Male
  Weight: 127.3 kg

DRUGS (1)
  1. DAPTOMYCIN. [Suspect]
     Active Substance: DAPTOMYCIN
     Indication: OSTEOMYELITIS
     Route: 041
     Dates: start: 20200714, end: 20200722

REACTIONS (6)
  - Malaise [None]
  - Headache [None]
  - Diarrhoea [None]
  - Insomnia [None]
  - Emotional distress [None]
  - Blood pressure increased [None]

NARRATIVE: CASE EVENT DATE: 20200721
